FAERS Safety Report 8556717-0 (Version None)
Quarter: 2012Q3

REPORT INFORMATION
  Report Type: 
  Country: None (occurrence: None)
  Receive Date: 20120801
  Receipt Date: 20120724
  Transmission Date: 20120928
  Serious: Yes (Other)
  Sender: FDA-Public Use
  Company Number: US-ASTELLAS-2012US005670

PATIENT
  Age: 72 Year
  Sex: Female

DRUGS (2)
  1. ENABLEX [Suspect]
     Indication: PRODUCT USED FOR UNKNOWN INDICATION
     Dosage: UNK
     Route: 065
  2. [NO SUSPECT PRODUCT] [Suspect]
     Dosage: UNK

REACTIONS (3)
  - NEOPLASM MALIGNANT [None]
  - CYSTITIS [None]
  - CONSTIPATION [None]
